FAERS Safety Report 6721693-X (Version None)
Quarter: 2010Q2

REPORT INFORMATION
  Report Type: 
  Country: None (occurrence: None)
  Receive Date: 20100512
  Receipt Date: 20100429
  Transmission Date: 20101027
  Serious: Yes (Other)
  Sender: FDA-Public Use
  Company Number: US-CELGENEUS-163-20785-10050140

PATIENT
  Sex: Male

DRUGS (7)
  1. THALOMID [Suspect]
     Indication: PROSTATE CANCER
     Route: 048
  2. DOCETAXEL [Suspect]
     Indication: PROSTATE CANCER
     Route: 051
  3. BEVACIZUMAB [Suspect]
     Indication: PROSTATE CANCER
     Route: 051
  4. PREDNISONE [Suspect]
     Indication: PROSTATE CANCER
     Route: 051
  5. ENOXAPARIN SODIUM [Concomitant]
     Indication: THROMBOSIS PROPHYLAXIS
     Route: 058
  6. PEGFILGRASTIM [Concomitant]
     Indication: DRUG USE FOR UNKNOWN INDICATION
     Route: 065
  7. ZOLEDRONIC ACID [Concomitant]
     Indication: DRUG USE FOR UNKNOWN INDICATION
     Route: 065

REACTIONS (33)
  - ANAEMIA [None]
  - ANAL FISTULA [None]
  - AORTIC DISSECTION [None]
  - BLOOD BILIRUBIN INCREASED [None]
  - CELLULITIS [None]
  - CONSTIPATION [None]
  - DEPRESSION [None]
  - DIARRHOEA [None]
  - DISEASE PROGRESSION [None]
  - DRY EYE [None]
  - DYSGEUSIA [None]
  - DYSPHONIA [None]
  - DYSPNOEA [None]
  - EPISTAXIS [None]
  - FATIGUE [None]
  - FEBRILE NEUTROPENIA [None]
  - GASTROINTESTINAL HAEMORRHAGE [None]
  - GASTROINTESTINAL PERFORATION [None]
  - HYPERTENSION [None]
  - HYPOALBUMINAEMIA [None]
  - LYMPHOPENIA [None]
  - NEPHROTIC SYNDROME [None]
  - NEUROPATHY PERIPHERAL [None]
  - NEUTROPENIA [None]
  - OSTEONECROSIS [None]
  - PALMAR-PLANTAR ERYTHRODYSAESTHESIA SYNDROME [None]
  - PLEURAL EFFUSION [None]
  - PROTEINURIA [None]
  - SYNCOPE [None]
  - THROMBOCYTOPENIA [None]
  - THROMBOSIS [None]
  - TRANSAMINASES INCREASED [None]
  - WEIGHT DECREASED [None]
